FAERS Safety Report 5569495-4 (Version None)
Quarter: 2007Q4

REPORT INFORMATION
  Report Type: 
  Country: None (occurrence: None)
  Receive Date: 20071218
  Receipt Date: 20071206
  Transmission Date: 20080405
  Serious: Yes (Other)
  Sender: FDA-Public Use
  Company Number: CHNY2007SE04004

PATIENT
  Age: 46 Year
  Sex: Female

DRUGS (2)
  1. OTRIVIN [Suspect]
     Indication: NASAL CONGESTION
     Dosage: 2 SPRAYS IN EACH NOSTRILS, NASAL
     Route: 045
  2. CORTISONE ACETATE [Concomitant]

REACTIONS (5)
  - ABNORMAL BEHAVIOUR [None]
  - CONVERSION DISORDER [None]
  - INCORRECT DRUG ADMINISTRATION DURATION [None]
  - NASAL CONGESTION [None]
  - PHARYNGOLARYNGEAL DISCOMFORT [None]
